FAERS Safety Report 25455526 (Version 1)
Quarter: 2025Q2

REPORT INFORMATION
  Report Type: Other
  Country: GB (occurrence: GB)
  Receive Date: 20250619
  Receipt Date: 20250619
  Transmission Date: 20250717
  Serious: Yes (Disabling, Other)
  Sender: STRIDES
  Company Number: None

PATIENT
  Age: 14 Year
  Sex: Female
  Weight: 65 kg

DRUGS (1)
  1. FLUOXETINE [Suspect]
     Active Substance: FLUOXETINE HYDROCHLORIDE
     Indication: Depression
     Route: 065
     Dates: start: 20240918

REACTIONS (3)
  - Mood swings [Not Recovered/Not Resolved]
  - Irritability [Not Recovered/Not Resolved]
  - Binge eating [Not Recovered/Not Resolved]

NARRATIVE: CASE EVENT DATE: 20240926
